FAERS Safety Report 13647943 (Version 1)
Quarter: 2017Q2

REPORT INFORMATION
  Report Type: Spontaneous
  Country: US (occurrence: US)
  Receive Date: 20170613
  Receipt Date: 20170613
  Transmission Date: 20170830
  Serious: Yes (Death)
  Sender: FDA-Public Use
  Company Number: US-ASTELLAS-2017US014646

PATIENT
  Age: 57 Year
  Sex: Male

DRUGS (1)
  1. ASTAGRAF XL [Suspect]
     Active Substance: TACROLIMUS
     Indication: RENAL TRANSPLANT
     Dosage: 4 MG, ONCE DAILY IN MORNING
     Route: 048
     Dates: start: 20150921, end: 20170529

REACTIONS (1)
  - Death [Fatal]

NARRATIVE: CASE EVENT DATE: 20170529
